FAERS Safety Report 10768349 (Version 3)
Quarter: 2015Q2

REPORT INFORMATION
  Report Type: Spontaneous
  Country: ES (occurrence: ES)
  Receive Date: 20150206
  Receipt Date: 20150415
  Transmission Date: 20150821
  Serious: Yes (Other)
  Sender: FDA-Public Use
  Company Number: ES-AMGEN-ESPSP2015010544

PATIENT
  Age: 63 Year
  Sex: Female

DRUGS (7)
  1. METOTREXATO                        /00113801/ [Suspect]
     Active Substance: METHOTREXATE
     Dosage: 2.5 MG, MONDAY AND THURSDAY 4-3
     Route: 065
     Dates: start: 2007
  2. METOTREXATO                        /00113801/ [Suspect]
     Active Substance: METHOTREXATE
     Indication: RHEUMATOID ARTHRITIS
     Dosage: 2.5 MG, MONDAY AND THURSDAY 2-2
     Route: 065
     Dates: start: 2002
  3. ACTOL                              /00224001/ [Concomitant]
     Dosage: UNK
     Dates: start: 2002
  4. ENBREL [Suspect]
     Active Substance: ETANERCEPT
     Indication: PRODUCT USED FOR UNKNOWN INDICATION
     Dosage: UNK
     Route: 065
     Dates: start: 2006, end: 20140402
  5. METOTREXATO                        /00113801/ [Suspect]
     Active Substance: METHOTREXATE
     Dosage: 2.5 MG, MONDAY AND THURSDAY 2-3
     Route: 065
     Dates: start: 2003
  6. METOTREXATO                        /00113801/ [Suspect]
     Active Substance: METHOTREXATE
     Dosage: 2.5 MG, THURSDAY 3
     Route: 065
     Dates: start: 2014
  7. METOTREXATO                        /00113801/ [Suspect]
     Active Substance: METHOTREXATE
     Dosage: 2.5 MG, THURSDAY 6
     Route: 065
     Dates: start: 20140307, end: 20140515

REACTIONS (4)
  - Brain neoplasm [Unknown]
  - Haemoptysis [Unknown]
  - Lung neoplasm malignant [Recovering/Resolving]
  - Optic nerve injury [Unknown]
